FAERS Safety Report 16498596 (Version 1)
Quarter: 2019Q2

REPORT INFORMATION
  Report Type: Spontaneous
  Country: AT (occurrence: AT)
  Receive Date: 20190629
  Receipt Date: 20190629
  Transmission Date: 20190711
  Serious: Yes (Other)
  Sender: FDA-Public Use
  Company Number: PHHY2019AT147547

PATIENT
  Age: 35 Year
  Sex: Female

DRUGS (15)
  1. NIVOLUMAB [Suspect]
     Active Substance: NIVOLUMAB
     Indication: PRODUCT USED FOR UNKNOWN INDICATION
     Dosage: UNK, CYCLIC
     Route: 065
     Dates: start: 201712
  2. NIVOLUMAB [Suspect]
     Active Substance: NIVOLUMAB
     Dosage: UNK UNK, CYCLIC
     Route: 065
     Dates: start: 201807
  3. DABRAFENIB [Suspect]
     Active Substance: DABRAFENIB
     Indication: PRODUCT USED FOR UNKNOWN INDICATION
     Dosage: UNK UNK, CYCLIC
     Route: 065
     Dates: start: 201710
  4. DABRAFENIB [Suspect]
     Active Substance: DABRAFENIB
     Dosage: UNK UNK, CYCLIC
     Route: 065
     Dates: start: 201712
  5. TRAMETINIB [Suspect]
     Active Substance: TRAMETINIB
     Dosage: UNK UNK, CYCLIC
     Route: 065
     Dates: start: 201803
  6. DABRAFENIB [Suspect]
     Active Substance: DABRAFENIB
     Dosage: UNK UNK, CYCLIC
     Route: 065
     Dates: start: 201803
  7. DABRAFENIB [Suspect]
     Active Substance: DABRAFENIB
     Dosage: UNK UNK, CYCLIC
     Route: 065
     Dates: start: 201804
  8. NIVOLUMAB [Suspect]
     Active Substance: NIVOLUMAB
     Dosage: UNK, CYCLIC
     Route: 065
     Dates: start: 201810
  9. TRAMETINIB [Suspect]
     Active Substance: TRAMETINIB
     Dosage: UNK UNK, CYCLIC
     Route: 065
     Dates: start: 201711
  10. TRAMETINIB [Suspect]
     Active Substance: TRAMETINIB
     Indication: PRODUCT USED FOR UNKNOWN INDICATION
     Dosage: UNK UNK, CYCLIC
     Route: 065
     Dates: start: 201710
  11. TRAMETINIB [Suspect]
     Active Substance: TRAMETINIB
     Dosage: UNK UNK, CYCLIC
     Route: 065
     Dates: start: 201712
  12. TRAMETINIB [Suspect]
     Active Substance: TRAMETINIB
     Dosage: UNK UNK, CYCLIC
     Route: 065
     Dates: start: 201807
  13. DABRAFENIB [Suspect]
     Active Substance: DABRAFENIB
     Dosage: UNK UNK, CYCLIC
     Route: 065
     Dates: start: 201711
  14. TRAMETINIB [Suspect]
     Active Substance: TRAMETINIB
     Dosage: UNK UNK, CYCLIC
     Route: 065
     Dates: start: 201805
  15. TRAMETINIB [Suspect]
     Active Substance: TRAMETINIB
     Dosage: UNK UNK, CYCLIC
     Route: 065
     Dates: start: 201810

REACTIONS (6)
  - Hepatic lesion [Unknown]
  - Dermatitis acneiform [Unknown]
  - Vertigo [Unknown]
  - Disease progression [Unknown]
  - Metastases to central nervous system [Unknown]
  - Paronychia [Unknown]

NARRATIVE: CASE EVENT DATE: 201807
